FAERS Safety Report 6023577-1 (Version None)
Quarter: 2008Q4

REPORT INFORMATION
  Report Type: 
  Country: None (occurrence: None)
  Receive Date: 20081226
  Receipt Date: 20081226
  Transmission Date: 20090506
  Serious: Yes (Life-Threatening, Other)
  Sender: FDA-Public Use
  Company Number: None

PATIENT
  Age: 40 Year
  Sex: Male
  Weight: 86.1834 kg

DRUGS (1)
  1. PROAIR HFA [Suspect]
     Indication: ASTHMA
     Dosage: 2-3 INHALATIONS 4HRS INHAL
     Route: 055

REACTIONS (3)
  - DEVICE MALFUNCTION [None]
  - DEVICE OCCLUSION [None]
  - PRODUCT QUALITY ISSUE [None]
